FAERS Safety Report 6823367-3 (Version None)
Quarter: 2010Q3

REPORT INFORMATION
  Report Type: 
  Country: None (occurrence: None)
  Receive Date: 20100708
  Receipt Date: 20100701
  Transmission Date: 20110219
  Serious: Yes (Other)
  Sender: FDA-Public Use
  Company Number: US-AMGEN-US377970

PATIENT
  Sex: Female

DRUGS (11)
  1. DENOSUMAB [Suspect]
     Indication: METASTASES TO BONE
     Route: 058
     Dates: start: 20090721, end: 20091103
  2. LYRICA [Concomitant]
  3. FASLODEX [Concomitant]
     Dates: start: 20090817, end: 20091103
  4. IMODIUM [Concomitant]
  5. CEFTRIAXONE [Concomitant]
     Route: 042
     Dates: start: 20091218
  6. AUGMENTAN [Concomitant]
  7. OXYGEN [Concomitant]
     Route: 055
  8. MOTRIN [Concomitant]
     Route: 048
  9. TYLENOL [Concomitant]
     Route: 048
  10. ZOFRAN [Concomitant]
     Route: 065
  11. PROMETHAZINE [Concomitant]
     Route: 065

REACTIONS (1)
  - OSTEONECROSIS OF JAW [None]
